FAERS Safety Report 7563162-3 (Version None)
Quarter: 2011Q2

REPORT INFORMATION
  Report Type: 
  Country: None (occurrence: None)
  Receive Date: 20110622
  Receipt Date: 20110614
  Transmission Date: 20111010
  Serious: Yes (Death, Hospitalization)
  Sender: FDA-Public Use
  Company Number: MX-SANOFI-AVENTIS-2011SA037856

PATIENT
  Age: 54 Year
  Sex: Female

DRUGS (2)
  1. INSULIN GLARGINE [Suspect]
     Indication: TYPE 2 DIABETES MELLITUS
     Dates: end: 20110101
  2. INSULIN GLARGINE [Suspect]
     Dosage: 10-12IU
     Dates: start: 20110101, end: 20110318

REACTIONS (2)
  - HYPOGLYCAEMIA [None]
  - RENAL FAILURE [None]
